FAERS Safety Report 5729461-2 (Version None)
Quarter: 2008Q2

REPORT INFORMATION
  Report Type: 
  Country: None (occurrence: None)
  Receive Date: 20080506
  Receipt Date: 20080423
  Transmission Date: 20081010
  Serious: Yes (Other)
  Sender: FDA-Public Use
  Company Number: US-ELI_LILLY_AND_COMPANY-US200804006102

PATIENT
  Sex: Female

DRUGS (4)
  1. HUMULIN 70/30 [Suspect]
  2. HUMULIN 70/30 [Suspect]
  3. HUMULIN 70/30 [Suspect]
  4. HUMULIN 70/30 [Suspect]

REACTIONS (8)
  - APPENDICITIS PERFORATED [None]
  - BLOOD GLUCOSE INCREASED [None]
  - COLON CANCER [None]
  - COLON OPERATION [None]
  - INCORRECT DOSE ADMINISTERED [None]
  - INJECTION SITE BRUISING [None]
  - NEOPLASM OF APPENDIX [None]
  - SOMNOLENCE [None]
